FAERS Safety Report 20517994 (Version 1)
Quarter: 2022Q1

REPORT INFORMATION
  Report Type: Spontaneous
  Country: US (occurrence: US)
  Receive Date: 20220225
  Receipt Date: 20220225
  Transmission Date: 20220423
  Serious: No
  Sender: FDA-Public Use
  Company Number: US-BIOVITRUM-2022US02825

PATIENT
  Age: 0 Year
  Sex: Female
  Weight: 6 kg

DRUGS (10)
  1. SYNAGIS [Suspect]
     Active Substance: PALIVIZUMAB
     Indication: Low birth weight baby
     Route: 030
  2. SYNAGIS [Suspect]
     Active Substance: PALIVIZUMAB
     Indication: Premature baby
  3. SYNAGIS [Suspect]
     Active Substance: PALIVIZUMAB
     Indication: Chronic respiratory disease
  4. POTASSIUM ACETATE [Concomitant]
     Active Substance: POTASSIUM ACETATE
     Dosage: 2 MEQ/ML VIAL
  5. VITAMINS [Concomitant]
     Active Substance: VITAMINS
     Dosage: 250-50/ML DROPS
  6. DIURIL [Concomitant]
     Active Substance: CHLOROTHIAZIDE
     Dosage: 250 MG/5ML
  7. SIMETHICONE (DIMETHICONE) [Concomitant]
     Active Substance: DIMETHICONE
     Dosage: 40MG/0.6ML DROPS SUSP
  8. FAMOTIDINE [Concomitant]
     Active Substance: FAMOTIDINE
     Dosage: 10 MG/ML VIAL
  9. LASIX [Concomitant]
     Active Substance: FUROSEMIDE
  10. EPINEPHRINE [Concomitant]
     Active Substance: EPINEPHRINE

REACTIONS (2)
  - COVID-19 [Recovered/Resolved]
  - Product dose omission issue [Unknown]

NARRATIVE: CASE EVENT DATE: 20220101
